FAERS Safety Report 12348298 (Version 1)
Quarter: 2016Q2

REPORT INFORMATION
  Report Type: Report from Study
  Country: US (occurrence: US)
  Receive Date: 20160509
  Receipt Date: 20160509
  Transmission Date: 20160815
  Serious: Yes (Other)
  Sender: FDA-Public Use
  Company Number: US-JNJFOC-20160505251

PATIENT
  Age: 63 Year
  Sex: Male

DRUGS (3)
  1. IBRUTINIB [Suspect]
     Active Substance: IBRUTINIB
     Indication: CHRONIC LYMPHOCYTIC LEUKAEMIA
     Route: 048
     Dates: start: 20160112, end: 20160119
  2. LISINOPRIL. [Concomitant]
     Active Substance: LISINOPRIL
  3. IBRUTINIB [Suspect]
     Active Substance: IBRUTINIB
     Indication: THERAPY NAIVE
     Route: 048
     Dates: start: 20160112, end: 20160119

REACTIONS (1)
  - Hiccups [Recovered/Resolved]

NARRATIVE: CASE EVENT DATE: 20160121
